FAERS Safety Report 4901053-4 (Version None)
Quarter: 2006Q1

REPORT INFORMATION
  Report Type: 
  Country: None (occurrence: None)
  Receive Date: 20060203
  Receipt Date: 20050520
  Transmission Date: 20060701
  Serious: Yes (Hospitalization, Disabling)
  Sender: FDA-Public Use
  Company Number: US-MERCK-0505USA02552

PATIENT
  Age: 38 Year
  Sex: Male
  Weight: 73 kg

DRUGS (2)
  1. VIOXX [Suspect]
     Indication: BACK PAIN
     Route: 048
     Dates: start: 19990101, end: 20011005
  2. VIOXX [Suspect]
     Route: 048
     Dates: start: 19990101, end: 20011005

REACTIONS (21)
  - ADJUSTMENT DISORDER [None]
  - BACK PAIN [None]
  - BALANCE DISORDER [None]
  - BRAIN STEM INFARCTION [None]
  - CEREBROVASCULAR ACCIDENT [None]
  - DIPLOPIA [None]
  - DIZZINESS [None]
  - DYSPHONIA [None]
  - FALL [None]
  - HORNER'S SYNDROME [None]
  - INJURY [None]
  - INSOMNIA [None]
  - LYMPHADENOPATHY [None]
  - MYOPIA [None]
  - REFRACTION DISORDER [None]
  - SARCOIDOSIS [None]
  - VERTIGO [None]
  - VISION BLURRED [None]
  - VISUAL DISTURBANCE [None]
  - VOMITING [None]
  - WALLENBERG SYNDROME [None]
